FAERS Safety Report 6248633-4 (Version None)
Quarter: 2009Q2

REPORT INFORMATION
  Report Type: 
  Country: None (occurrence: None)
  Receive Date: 20090624
  Receipt Date: 20090330
  Transmission Date: 20091009
  Serious: Yes (Other)
  Sender: FDA-Public Use
  Company Number: US-1169114

PATIENT
  Sex: Female
  Weight: 77.1115 kg

DRUGS (10)
  1. TRIESENCE [Suspect]
     Dosage: (INTRAOCULAR)
     Route: 031
     Dates: start: 20081105, end: 20081105
  2. METOPROLOL SUCCINATE [Concomitant]
  3. ASPIRIN [Concomitant]
  4. PLAVIX [Concomitant]
  5. OXYCONTIN [Concomitant]
  6. ZOCOR [Concomitant]
  7. GABAPENTIN [Concomitant]
  8. DIGITALIS GLYCOSIDES [Concomitant]
  9. PHOSLO [Concomitant]
  10. NOVOLOG [Concomitant]

REACTIONS (1)
  - VISUAL ACUITY REDUCED [None]
